FAERS Safety Report 4572032-4 (Version None)
Quarter: 2005Q1

REPORT INFORMATION
  Report Type: 
  Country: None (occurrence: None)
  Receive Date: 20050202
  Receipt Date: 20050120
  Transmission Date: 20050727
  Serious: Yes (Death, Hospitalization, Other)
  Sender: FDA-Public Use
  Company Number: 2005018222

PATIENT
  Age: 83 Year
  Sex: Male

DRUGS (1)
  1. CELEBREX [Suspect]
     Indication: OSTEOARTHRITIS
     Dosage: ORAL
     Route: 048
     Dates: start: 20010101, end: 20010301

REACTIONS (5)
  - ACUTE RESPIRATORY FAILURE [None]
  - ANOREXIA [None]
  - ORAL INTAKE REDUCED [None]
  - SMALL INTESTINAL HAEMORRHAGE [None]
  - SOMNOLENCE [None]
